FAERS Safety Report 10159091 (Version 3)
Quarter: 2016Q3

REPORT INFORMATION
  Report Type: Report from Study
  Country: BR (occurrence: BR)
  Receive Date: 20140508
  Receipt Date: 20160823
  Transmission Date: 20161108
  Serious: Yes (Other)
  Sender: FDA-Public Use
  Company Number: BR-ROCHE-1102037

PATIENT
  Age: 33 Year
  Sex: Female
  Weight: 47 kg

DRUGS (7)
  1. MABTHERA [Suspect]
     Active Substance: RITUXIMAB
     Indication: RHEUMATOID ARTHRITIS
     Dosage: 500MG/50ML
     Route: 042
     Dates: end: 20120806
  2. REUQUINOL [Concomitant]
     Active Substance: HYDROXYCHLOROQUINE SULFATE
     Route: 065
  3. PREGABALIN. [Concomitant]
     Active Substance: PREGABALIN
     Route: 065
  4. MABTHERA [Suspect]
     Active Substance: RITUXIMAB
     Indication: SJOGREN^S SYNDROME
     Dosage: LATEST INFUSION : JAN/2016
     Route: 042
     Dates: end: 20130415
  5. OMEPRAZOLE. [Concomitant]
     Active Substance: OMEPRAZOLE
  6. PAROXETINE. [Concomitant]
     Active Substance: PAROXETINE
     Route: 065
  7. RISPERIDONE. [Concomitant]
     Active Substance: RISPERIDONE
     Route: 065

REACTIONS (3)
  - Headache [Recovered/Resolved]
  - Flatulence [Recovered/Resolved]
  - Skin test positive [Not Recovered/Not Resolved]

NARRATIVE: CASE EVENT DATE: 20120807
